FAERS Safety Report 9216102 (Version 5)
Quarter: 2014Q2

REPORT INFORMATION
  Report Type: Report from Study
  Country: PT (occurrence: PT)
  Receive Date: 20130408
  Receipt Date: 20140625
  Transmission Date: 20141212
  Serious: Yes (Death, Hospitalization)
  Sender: FDA-Public Use
  Company Number: PT-CELGENEUS-130-C5013-13040147

PATIENT
  Age: 76 Year
  Sex: Male
  Weight: 65 kg

DRUGS (6)
  1. PLACEBO [Suspect]
     Indication: MYELODYSPLASTIC SYNDROME
     Dosage: 10 MILLIGRAM
     Route: 048
     Dates: start: 20130124
  2. PLACEBO [Suspect]
     Dosage: 10 MILLIGRAM
     Route: 048
     Dates: start: 20130320, end: 20130328
  3. ESCITALOPRAM [Concomitant]
     Indication: DEPRESSION
     Dosage: 20 MILLIGRAM
     Route: 048
     Dates: start: 200901
  4. PROPRANOLOL [Concomitant]
     Indication: HYPERTENSION
     Dosage: 40 MILLIGRAM
     Route: 048
     Dates: start: 200001
  5. PREDNISOLONE [Concomitant]
     Indication: MYALGIA
     Dosage: 15 MILLIGRAM
     Route: 048
     Dates: start: 201001
  6. OMEPRAZOLE [Concomitant]
     Indication: PROPHYLAXIS
     Dosage: 20 MILLIGRAM
     Route: 048
     Dates: start: 200001

REACTIONS (2)
  - Acute myocardial infarction [Fatal]
  - Pulmonary oedema [Fatal]
